FAERS Safety Report 6078458-4 (Version None)
Quarter: 2009Q1

REPORT INFORMATION
  Report Type: 
  Country: None (occurrence: None)
  Receive Date: 20090212
  Receipt Date: 20090212
  Transmission Date: 20090719
  Serious: Yes (Disabling)
  Sender: FDA-Public Use
  Company Number: None

PATIENT
  Sex: Male
  Weight: 125.6 kg

DRUGS (2)
  1. ZOLPIDEM [Suspect]
     Indication: INSOMNIA
     Dosage: 10MG AT BEDTIME PO
     Route: 048
     Dates: start: 20090204, end: 20090206
  2. VENLAFAXINE 50MG [Suspect]
     Indication: DEPRESSION
     Dosage: 50MG EVERY DAY PO
     Route: 048
     Dates: start: 20090204, end: 20090206

REACTIONS (2)
  - HALLUCINATION [None]
  - URINARY RETENTION [None]
